FAERS Safety Report 6528251-0 (Version None)
Quarter: 2010Q1

REPORT INFORMATION
  Report Type: 
  Country: None (occurrence: None)
  Receive Date: 20100105
  Receipt Date: 20100105
  Transmission Date: 20100710
  Serious: Yes (Life-Threatening, Other)
  Sender: FDA-Public Use
  Company Number: None

PATIENT
  Age: 73 Year
  Sex: Female
  Weight: 68.0396 kg

DRUGS (1)
  1. EFFEXOR [Suspect]
     Indication: DEPRESSION
     Dosage: MAYBE 75 MG -ONE PILL ONLY PO
     Route: 048

REACTIONS (10)
  - DEPERSONALISATION [None]
  - FEAR [None]
  - FEELING ABNORMAL [None]
  - HOMICIDAL IDEATION [None]
  - IMPULSE-CONTROL DISORDER [None]
  - PRODUCT QUALITY ISSUE [None]
  - PSYCHOPATHIC PERSONALITY [None]
  - PSYCHOTIC DISORDER [None]
  - SUICIDAL IDEATION [None]
  - UNEVALUABLE EVENT [None]
